FAERS Safety Report 9843535 (Version 1)
Quarter: 2013Q4

REPORT INFORMATION
  Report Type: Spontaneous
  Country: US (occurrence: None)
  Receive Date: 20131223
  Receipt Date: 20131223
  Transmission Date: 20140711
  Serious: No
  Sender: FDA-Public Use
  Company Number: 218409LEO

PATIENT
  Age: 61 Year
  Sex: Male

DRUGS (1)
  1. PICATO (0.015 %, GEL) [Suspect]
     Dates: start: 20120712, end: 20120714

REACTIONS (2)
  - Application site pain [None]
  - Headache [None]
